FAERS Safety Report 6556524-4 (Version None)
Quarter: 2010Q1

REPORT INFORMATION
  Report Type: 
  Country: None (occurrence: None)
  Receive Date: 20100125
  Receipt Date: 20100111
  Transmission Date: 20100710
  Serious: Yes (Other)
  Sender: FDA-Public Use
  Company Number: 2010003531

PATIENT
  Age: 55 Year
  Sex: Male
  Weight: 110 kg

DRUGS (6)
  1. FRAGMIN [Suspect]
     Indication: THROMBOSIS PROPHYLAXIS
     Dosage: 5000 IU, ALTERNATE DAY, SUBCUTANEOUS
     Route: 058
     Dates: start: 20070101
  2. GODAMED (ACETYLSALICYLIC ACID, AMINOACETIC ACID) [Concomitant]
  3. AMARYL [Concomitant]
  4. NOVOLOG [Concomitant]
  5. RAMIPRIL [Concomitant]
  6. METOHEXAL (METOPROLOL TARTRATE) [Concomitant]

REACTIONS (6)
  - BILIARY COLIC [None]
  - EPISTAXIS [None]
  - FEELING ABNORMAL [None]
  - LOWER LIMB FRACTURE [None]
  - NASAL MUCOSAL DISORDER [None]
  - NAUSEA [None]
